FAERS Safety Report 5843107-4 (Version None)
Quarter: 2008Q3

REPORT INFORMATION
  Report Type: 
  Country: None (occurrence: None)
  Receive Date: 20080812
  Receipt Date: 20080812
  Transmission Date: 20090109
  Serious: No
  Sender: FDA-Public Use
  Company Number: None

PATIENT
  Sex: Male
  Weight: 113.3993 kg

DRUGS (3)
  1. ZOCOR [Suspect]
     Indication: CARDIAC DISORDER
  2. MEVACOR [Suspect]
  3. LIPITOR [Suspect]

REACTIONS (4)
  - BALANCE DISORDER [None]
  - GAIT DISTURBANCE [None]
  - NECK PAIN [None]
  - NEUROPATHY PERIPHERAL [None]
